FAERS Safety Report 5375192-0 (Version None)
Quarter: 2007Q2

REPORT INFORMATION
  Report Type: 
  Country: None (occurrence: None)
  Receive Date: 20070629
  Receipt Date: 20070622
  Transmission Date: 20071010
  Serious: Yes (Hospitalization)
  Sender: FDA-Public Use
  Company Number: DE-ASTRAZENECA-2007PK01255

PATIENT
  Age: 57 Year
  Sex: Female

DRUGS (13)
  1. SEROQUEL [Suspect]
     Route: 048
     Dates: end: 20070128
  2. SEROQUEL [Suspect]
     Route: 048
     Dates: start: 20070129, end: 20070212
  3. SEROQUEL [Suspect]
     Route: 048
     Dates: start: 20070216, end: 20070223
  4. SEROQUEL [Suspect]
     Route: 048
     Dates: start: 20070225, end: 20070225
  5. SEROQUEL [Suspect]
     Route: 048
     Dates: start: 20070226, end: 20070226
  6. SEROQUEL [Suspect]
     Route: 048
     Dates: start: 20070227, end: 20070227
  7. SEROQUEL [Suspect]
     Route: 048
     Dates: start: 20070228, end: 20070228
  8. BELOC ZOK [Concomitant]
     Dosage: SINCE ONE YEAR
     Route: 048
  9. VALPROATE SODIUM [Concomitant]
     Route: 048
     Dates: start: 20060101, end: 20070215
  10. VALPROATE SODIUM [Concomitant]
     Route: 048
     Dates: start: 20070216
  11. DIAZEPAM [Concomitant]
     Dosage: 15 MG TO 3 MG PER DAY
     Dates: start: 20070213, end: 20070225
  12. DIAZEPAM [Concomitant]
     Route: 048
     Dates: start: 20070226, end: 20070303
  13. LEVOTHYROXINE SODIUM [Concomitant]
     Route: 048

REACTIONS (1)
  - NEUTROPENIA [None]
